FAERS Safety Report 10009554 (Version 2)
Quarter: 2014Q1

REPORT INFORMATION
  Report Type: Spontaneous
  Country: US (occurrence: US)
  Receive Date: 20140312
  Receipt Date: 20140312
  Transmission Date: 20141002
  Serious: No
  Sender: FDA-Public Use
  Company Number: US-INCYTE CORPORATION-2012IN001742

PATIENT
  Sex: Male

DRUGS (4)
  1. JAKAFI [Suspect]
     Indication: MYELOFIBROSIS
     Dosage: 15 MG, BID
     Route: 048
     Dates: start: 20111209, end: 20120531
  2. CITALOPRAM [Concomitant]
  3. COLCHICINE [Concomitant]
  4. ALLOPURINOL [Concomitant]

REACTIONS (2)
  - Bone pain [Unknown]
  - Anaemia [Unknown]
